FAERS Safety Report 14630331 (Version 1)
Quarter: 2018Q1

REPORT INFORMATION
  Report Type: Spontaneous
  Country: US (occurrence: US)
  Receive Date: 20180313
  Receipt Date: 20180313
  Transmission Date: 20180509
  Serious: No
  Sender: FDA-Public Use
  Company Number: US-TEVA-2018-US-860606

PATIENT
  Age: 70 Year
  Sex: Female

DRUGS (2)
  1. FENTANYL. [Suspect]
     Active Substance: FENTANYL
     Indication: RHEUMATOID ARTHRITIS
     Dosage: DOSE STRENGTH:  25MCG 5
     Dates: start: 201708
  2. FENTANYL. [Suspect]
     Active Substance: FENTANYL
     Indication: BACK PAIN
     Dates: start: 201708

REACTIONS (6)
  - Pain [Unknown]
  - Product used for unknown indication [Unknown]
  - Malaise [Unknown]
  - Back pain [Unknown]
  - Speech disorder [Unknown]
  - Viral infection [Unknown]

NARRATIVE: CASE EVENT DATE: 20180211
